FAERS Safety Report 11414472 (Version 1)
Quarter: 2015Q3

REPORT INFORMATION
  Report Type: Spontaneous
  Country: US (occurrence: US)
  Receive Date: 20150824
  Receipt Date: 20150824
  Transmission Date: 20151125
  Serious: Yes (Hospitalization, Other)
  Sender: FDA-Public Use
  Company Number: US-AMGEN-USASP2015085272

PATIENT
  Age: 70 Year
  Sex: Male

DRUGS (10)
  1. TRIAMTERENE AND HYDROCHLOROTHIAZIDE [Concomitant]
     Active Substance: HYDROCHLOROTHIAZIDE\TRIAMTERENE
     Dosage: 1632 - 37.5/25
  2. ATORVASTATIN [Concomitant]
     Active Substance: ATORVASTATIN
     Dosage: PD 155/10- 10 MG
  3. ZOLPIDEM TARTATE [Concomitant]
     Active Substance: ZOLPIDEM TARTRATE
     Dosage: 10 MG, UNK
  4. CLONIDINE HCL [Concomitant]
     Active Substance: CLONIDINE HYDROCHLORIDE
     Dosage: 0.1 MG, UNK
  5. ENBREL [Suspect]
     Active Substance: ETANERCEPT
     Indication: PRODUCT USED FOR UNKNOWN INDICATION
     Dosage: 50 MG, QWK
     Route: 058
     Dates: start: 20091228
  6. MYRBETRIQ [Concomitant]
     Active Substance: MIRABEGRON
     Dosage: 355-50 MG
  7. CIALIS [Concomitant]
     Active Substance: TADALAFIL
     Dosage: C5 - 5MG
  8. TAMSULOSIN HCL [Concomitant]
     Active Substance: TAMSULOSIN
     Dosage: ZA-18 - 0.4MG
  9. LISINOPRIL. [Concomitant]
     Active Substance: LISINOPRIL
     Dosage: 20 MG, UNK
  10. LORAZEPAM. [Concomitant]
     Active Substance: LORAZEPAM
     Dosage: 0.5 MG, UNK

REACTIONS (2)
  - Femur fracture [Recovered/Resolved]
  - Road traffic accident [Recovered/Resolved]

NARRATIVE: CASE EVENT DATE: 201505
